FAERS Safety Report 8961346 (Version 2)
Quarter: 2014Q2

REPORT INFORMATION
  Report Type: Report from Study
  Country: AU (occurrence: AU)
  Receive Date: 20121212
  Receipt Date: 20131018
  Transmission Date: 20141212
  Serious: Yes (Life-Threatening, Hospitalization, Other)
  Sender: FDA-Public Use
  Company Number: AU-PFIZER INC-2012310176

PATIENT
  Age: 55 Year
  Sex: Female

DRUGS (57)
  1. SIROLIMUS [Suspect]
     Indication: PROPHYLAXIS AGAINST TRANSPLANT REJECTION
     Dosage: 1 MG, 1X/DAY
     Route: 048
     Dates: start: 20040609, end: 20041223
  2. SIROLIMUS [Suspect]
     Dosage: 1 MG, 1X/DAY
     Route: 048
     Dates: start: 20041224, end: 20041230
  3. METHYLPREDNISOLONE SODIUM SUCCINATE [Suspect]
     Indication: PROPHYLAXIS AGAINST TRANSPLANT REJECTION
     Dosage: 250 MG, 1X/DAY
     Route: 042
     Dates: start: 20040609, end: 20040612
  4. METHYLPREDNISOLONE SODIUM SUCCINATE [Suspect]
     Dosage: 250 MG, 1X/DAY
     Route: 042
     Dates: start: 20040804, end: 20040809
  5. METHYLPREDNISOLONE SODIUM SUCCINATE [Suspect]
     Dosage: 250 MG, 1X/DAY
     Route: 042
     Dates: start: 20040819, end: 20040823
  6. METHYLPREDNISOLONE SODIUM SUCCINATE [Suspect]
     Dosage: 250 MG, 1X/DAY
     Route: 042
     Dates: start: 20040929, end: 20041002
  7. METHYLPREDNISOLONE SODIUM SUCCINATE [Suspect]
     Dosage: 1000 MG, 1X/DAY
     Route: 042
     Dates: start: 20041022, end: 20041024
  8. METHYLPREDNISOLONE SODIUM SUCCINATE [Suspect]
     Dosage: 20 MG, 1X/DAY
     Route: 042
     Dates: start: 20050305, end: 20050518
  9. METHYLPREDNISOLONE SODIUM SUCCINATE [Suspect]
     Dosage: 250 MG, 1X/DAY
     Route: 042
     Dates: start: 20051117, end: 20051120
  10. DACLIZUMAB [Suspect]
     Indication: PROPHYLAXIS AGAINST TRANSPLANT REJECTION
     Dosage: 135 MG, SINGLE AT BASELINE VISIT
     Route: 042
     Dates: start: 20040609, end: 20040609
  11. DACLIZUMAB [Suspect]
     Dosage: 75 MG, 1 IN 2 WK, AT WEEK 2,4,6,8
     Route: 042
     Dates: start: 20040622, end: 20040805
  12. MYCOPHENOLATE MOFETIL [Suspect]
     Indication: PROPHYLAXIS AGAINST TRANSPLANT REJECTION
     Dosage: 1000 MG, 2X/DAY
     Route: 048
     Dates: start: 20040609
  13. MYCOPHENOLATE MOFETIL [Suspect]
     Dosage: 750 MG, 2X/DAY
     Route: 048
     Dates: start: 20040618
  14. MYCOPHENOLATE MOFETIL [Suspect]
     Dosage: 750 MG, 2X/DAY
     Route: 048
     Dates: start: 20040718, end: 20040809
  15. MYCOPHENOLATE MOFETIL [Suspect]
     Dosage: 500 MG, 2X/DAY
     Route: 048
     Dates: start: 20040810
  16. MYCOPHENOLATE MOFETIL [Suspect]
     Dosage: 1000 MG, 2X/DAY
     Route: 048
     Dates: start: 20040820
  17. MYCOPHENOLATE MOFETIL [Suspect]
     Dosage: UNK
     Route: 048
     Dates: end: 20050227
  18. MYCOPHENOLATE MOFETIL [Suspect]
     Dosage: 500 MG, 3X/DAY
     Route: 048
     Dates: start: 20051102
  19. TACROLIMUS [Suspect]
     Indication: PROPHYLAXIS AGAINST TRANSPLANT REJECTION
     Dosage: 1.5 MG, 2X/DAY
     Route: 048
     Dates: start: 20040809, end: 20050303
  20. TACROLIMUS [Suspect]
     Indication: PROPHYLAXIS AGAINST TRANSPLANT REJECTION
     Dosage: 6 MG, SINGLE
     Route: 048
     Dates: start: 20040609, end: 20040609
  21. CYCLOSPORINE [Suspect]
     Indication: PROPHYLAXIS AGAINST TRANSPLANT REJECTION
     Dosage: 50 MG, 1X/DAY
     Route: 048
     Dates: start: 20050517, end: 20050621
  22. PREDNISONE [Suspect]
     Indication: PROPHYLAXIS AGAINST TRANSPLANT REJECTION
     Dosage: 10 MG, 1X/DAY
     Route: 048
     Dates: start: 20040612, end: 20041022
  23. OMEPRAZOLE [Concomitant]
     Dosage: 20 MG, 2X/DAY
     Route: 048
     Dates: start: 20040902
  24. NORFLOXACIN [Concomitant]
     Dosage: 40 MG, 2X/DAY
     Route: 048
     Dates: start: 20040903
  25. VALACICLOVIR [Concomitant]
     Dosage: 1500 UNK, 2X/DAY
     Route: 048
     Dates: start: 20040615, end: 20040622
  26. VALACICLOVIR [Concomitant]
     Dosage: 1500 MG, 2X/DAY
     Route: 048
     Dates: start: 20040629
  27. THYROXINE [Concomitant]
     Dosage: 150 MG, 1X/DAY
     Route: 048
     Dates: start: 20040901
  28. CALCITRIOL [Concomitant]
     Dosage: 0.5 MG, 1X/DAY
     Route: 048
  29. ATENOLOL [Concomitant]
     Dosage: 50 MG, 1X/DAY
     Route: 048
     Dates: start: 20050316
  30. ATENOLOL [Concomitant]
     Dosage: 25 MG, 1X/DAY
     Route: 048
     Dates: start: 20051115
  31. LIPITOR [Concomitant]
     Dosage: 10 MG, 1X/DAY
     Route: 048
     Dates: start: 20040629
  32. LASIX [Concomitant]
     Dosage: 40 MG, 1X/DAY
     Route: 048
     Dates: start: 20040713
  33. SLOW-K [Concomitant]
     Dosage: 1 MG, 1X/DAY
     Route: 048
     Dates: end: 20040901
  34. ACTRAPID HUMAN [Concomitant]
     Dosage: 4 IU, 1X/DAY
     Route: 058
     Dates: start: 20050226, end: 20050303
  35. ACTRAPID HUMAN [Concomitant]
     Dosage: 20 IU, 1X/DAY
     Route: 058
     Dates: start: 20050305
  36. ACTRAPID HUMAN [Concomitant]
     Dosage: 6 IU, 2X/DAY
     Route: 058
     Dates: start: 20060203
  37. ACTRAPID HUMAN [Concomitant]
     Dosage: 10 IU, 1X/DAY
     Route: 058
     Dates: start: 20060605
  38. ACTRAPID HUMAN [Concomitant]
     Dosage: 10 IU, 1X/DAY
     Route: 058
     Dates: start: 20061211
  39. ADALAT SL - SLOW RELEASE [Concomitant]
     Dosage: UNK
     Dates: start: 20061009
  40. ARANESP [Concomitant]
     Dosage: 40 UG, WEEKLY
     Route: 058
     Dates: start: 20040803, end: 20040920
  41. ARANESP [Concomitant]
     Dosage: 60 UG, WEEKLY
     Route: 058
     Dates: start: 20041120, end: 20050816
  42. ARANESP [Concomitant]
     Dosage: 60 UG, WEEKLY
     Route: 058
     Dates: start: 20051219, end: 20060213
  43. ARANESP [Concomitant]
     Dosage: 60 UG, 1 M
     Route: 058
     Dates: start: 20060327
  44. ATGAM [Concomitant]
     Dosage: 300 MG, 1X/DAY
     Route: 042
     Dates: start: 20041025, end: 20041031
  45. AZATHIOPRINE [Concomitant]
     Dosage: 75 MG, 1X/DAY
     Route: 048
     Dates: start: 20050531
  46. DARBEPOETIN ALFA [Concomitant]
     Dosage: 40 UG, WEEKLY
     Route: 058
     Dates: start: 20040803
  47. DIAMICRON [Concomitant]
     Dosage: 90 MG, 1X/DAY
     Route: 048
     Dates: start: 20050520
  48. METRONIDAZOLE [Concomitant]
     Dosage: 500 MG, 2X/DAY
     Route: 042
     Dates: start: 20050305, end: 20050422
  49. METRONIDAZOLE [Concomitant]
     Dosage: 500 MG, 1X/DAY
     Route: 048
     Dates: start: 20050423, end: 20050428
  50. METRONIDAZOLE [Concomitant]
     Dosage: UNK
     Route: 048
     Dates: end: 20050429
  51. METRONIDAZOLE [Concomitant]
     Dosage: 400 MG, 3X/DAY
     Route: 048
     Dates: start: 20050506, end: 20050514
  52. NYSTATIN [Concomitant]
     Dosage: 100000 IU, 2X/DAY
     Route: 048
     Dates: start: 20040617, end: 20040719
  53. PENTAMIDINE [Concomitant]
     Dosage: 300 MG, MONTHLY
     Route: 055
     Dates: start: 20040616
  54. PRAZOSIN [Concomitant]
     Dosage: 0.5 MG, 1X/DAY
     Route: 048
     Dates: start: 20050506, end: 20050517
  55. PROTAPHANE MC [Concomitant]
     Dosage: 10 IU, 1X/DAY
     Route: 058
     Dates: start: 20040228, end: 20050304
  56. PROTAPHANE MC [Concomitant]
     Dosage: 20 IU, 1X/DAY
     Route: 058
     Dates: start: 20050305
  57. VALGANCICLOVIR [Concomitant]
     Dosage: 450 MG, 1X/DAY
     Route: 048
     Dates: start: 20050226, end: 20050301

REACTIONS (12)
  - Post transplant lymphoproliferative disorder [Recovered/Resolved]
  - Bleeding time prolonged [Recovered/Resolved]
  - Colon cancer [Recovered/Resolved]
  - Headache [Not Recovered/Not Resolved]
  - Hypertension [Recovered/Resolved]
  - Hypertension [Not Recovered/Not Resolved]
  - Hydronephrosis [Recovered/Resolved]
  - Ureteric obstruction [Recovered/Resolved]
  - Pyrexia [Recovered/Resolved]
  - Leukopenia [Recovered/Resolved]
  - Anaemia [Not Recovered/Not Resolved]
  - Squamous cell carcinoma of skin [Recovered/Resolved]
